FAERS Safety Report 6220214-8 (Version None)
Quarter: 2009Q2

REPORT INFORMATION
  Report Type: 
  Country: None (occurrence: None)
  Receive Date: 20090609
  Receipt Date: 20090526
  Transmission Date: 20091009
  Serious: Yes (Other)
  Sender: FDA-Public Use
  Company Number: GB-ELI_LILLY_AND_COMPANY-GB200903004120

PATIENT
  Sex: Female

DRUGS (7)
  1. ZYPREXA [Suspect]
     Indication: BIPOLAR DISORDER
     Dosage: 10 MG, UNK
     Route: 048
     Dates: start: 20010101
  2. CARBIMAZOLE [Concomitant]
     Indication: HYPERTHYROIDISM
  3. VALPROATE SODIUM [Concomitant]
     Indication: BIPOLAR DISORDER
     Dosage: 800 MG, UNK
     Route: 048
     Dates: start: 20010101
  4. CYCLOPHOSPHAMIDE [Concomitant]
     Indication: BREAST CANCER
     Dates: start: 20090101, end: 20090201
  5. METHOTREXATE [Concomitant]
     Indication: BREAST CANCER
     Dates: start: 20090101, end: 20090201
  6. FLUOROURACIL [Concomitant]
     Indication: BREAST CANCER
     Dates: start: 20090101, end: 20090201
  7. EPIRUBICIN [Concomitant]
     Indication: BREAST CANCER
     Dates: start: 20090101, end: 20090201

REACTIONS (2)
  - NEUTROPENIA [None]
  - PANCYTOPENIA [None]
